FAERS Safety Report 5429418-5 (Version None)
Quarter: 2007Q3

REPORT INFORMATION
  Report Type: 
  Country: None (occurrence: None)
  Receive Date: 20070829
  Receipt Date: 20070817
  Transmission Date: 20080115
  Serious: Yes (Disabling, Other)
  Sender: FDA-Public Use
  Company Number: US-ROCHE-480025

PATIENT
  Age: 61 Year
  Sex: Male
  Weight: 73.9 kg

DRUGS (4)
  1. PEGASYS [Suspect]
     Indication: DRUG USE FOR UNKNOWN INDICATION
     Dosage: STOPPED AT 48 WEEKS.
     Route: 065
     Dates: start: 20040501, end: 20050401
  2. RIBAVIRIN [Suspect]
     Indication: DRUG USE FOR UNKNOWN INDICATION
     Dosage: STOPPED AT 48 WEEKS.
     Route: 065
     Dates: end: 20050401
  3. METFORMIN [Concomitant]
     Route: 048
  4. TYLENOL (CAPLET) [Concomitant]
     Route: 048

REACTIONS (5)
  - DEAFNESS [None]
  - DYSPHONIA [None]
  - METAL POISONING [None]
  - NO THERAPEUTIC RESPONSE [None]
  - PARKINSON'S DISEASE [None]
